FAERS Safety Report 6764953-9 (Version None)
Quarter: 2010Q2

REPORT INFORMATION
  Report Type: 
  Country: None (occurrence: None)
  Receive Date: 20100609
  Receipt Date: 20100506
  Transmission Date: 20101027
  Serious: No
  Sender: FDA-Public Use
  Company Number: 2010010877

PATIENT
  Age: 8 Year
  Sex: Male
  Weight: 22.2263 kg

DRUGS (2)
  1. CHILDREN'S ZYRTEC ALLERGY [Suspect]
     Indication: HYPERSENSITIVITY
     Dosage: 5ML 1X A DAY, ORAL
     Route: 048
     Dates: start: 20090404, end: 20100315
  2. IBUPROFEN [Suspect]
     Indication: DRUG USE FOR UNKNOWN INDICATION
     Dosage: UNSPECIFIED

REACTIONS (2)
  - ARTHRALGIA [None]
  - PRODUCT QUALITY ISSUE [None]
